FAERS Safety Report 5399629-6 (Version None)
Quarter: 2007Q3

REPORT INFORMATION
  Report Type: 
  Country: None (occurrence: None)
  Receive Date: 20070727
  Receipt Date: 20070720
  Transmission Date: 20080115
  Serious: Yes (Hospitalization)
  Sender: FDA-Public Use
  Company Number: JP-ASTRAZENECA-2007AP04429

PATIENT
  Age: 63 Year
  Sex: Male

DRUGS (3)
  1. CRESTOR [Suspect]
     Indication: HYPERCHOLESTEROLAEMIA
     Route: 048
     Dates: start: 20070301
  2. PLAVIX [Concomitant]
     Route: 048
     Dates: start: 20070301
  3. PLETAL [Concomitant]
     Route: 048

REACTIONS (1)
  - DRUG ERUPTION [None]
